FAERS Safety Report 6707276-6 (Version None)
Quarter: 2010Q2

REPORT INFORMATION
  Report Type: 
  Country: None (occurrence: None)
  Receive Date: 20100503
  Receipt Date: 20091026
  Transmission Date: 20101027
  Serious: No
  Sender: FDA-Public Use
  Company Number: US-ASTRAZENECA-2009SE22625

PATIENT
  Age: 58 Year
  Sex: Female
  Weight: 59.9 kg

DRUGS (6)
  1. NEXIUM [Suspect]
     Indication: GASTROOESOPHAGEAL REFLUX DISEASE
     Route: 048
  2. PROAIR HFA [Concomitant]
  3. ALLEGRA [Concomitant]
  4. TRAZINE [Concomitant]
  5. MEPROVANIMATE [Concomitant]
  6. IBRUPROFEN [Concomitant]

REACTIONS (2)
  - GASTROOESOPHAGEAL REFLUX DISEASE [None]
  - SENSATION OF FOREIGN BODY [None]
